FAERS Safety Report 4688978-2 (Version None)
Quarter: 2005Q2

REPORT INFORMATION
  Report Type: 
  Country: None (occurrence: None)
  Receive Date: 20050613
  Receipt Date: 20050125
  Transmission Date: 20051028
  Serious: Yes (Life-Threatening, Hospitalization, Disabling)
  Sender: FDA-Public Use
  Company Number: US-MERCK-0501USA03909

PATIENT
  Age: 48 Year
  Sex: Female

DRUGS (1)
  1. VIOXX [Suspect]
     Indication: PAIN
     Route: 048
     Dates: start: 20001024, end: 20010216

REACTIONS (24)
  - ABDOMINAL PAIN [None]
  - BLOOD CHOLESTEROL INCREASED [None]
  - BLOOD URINE PRESENT [None]
  - CARDIOMEGALY [None]
  - CHEST PAIN [None]
  - COLON ADENOMA [None]
  - CONSTIPATION [None]
  - DRY SOCKET [None]
  - DYSPLASIA [None]
  - EXTRASYSTOLES [None]
  - HEART RATE INCREASED [None]
  - HYPERTENSION [None]
  - INTERVERTEBRAL DISC PROTRUSION [None]
  - NECK INJURY [None]
  - OTITIS MEDIA [None]
  - PAIN [None]
  - PAIN IN JAW [None]
  - PALPITATIONS [None]
  - ROAD TRAFFIC ACCIDENT [None]
  - UPPER RESPIRATORY TRACT INFECTION [None]
  - URINARY TRACT INFECTION [None]
  - VAGINAL PROLAPSE [None]
  - VENTRICULAR EXTRASYSTOLES [None]
  - WRIST FRACTURE [None]
